FAERS Safety Report 21768455 (Version 1)
Quarter: 2022Q4

REPORT INFORMATION
  Report Type: Spontaneous
  Country: US (occurrence: None)
  Receive Date: 20221221
  Receipt Date: 20221221
  Transmission Date: 20230113
  Serious: Yes (Hospitalization)
  Sender: FDA-Public Use
  Company Number: None

PATIENT
  Sex: Female

DRUGS (6)
  1. SODIUM CHLORIDE [Suspect]
     Active Substance: SODIUM CHLORIDE
     Indication: Cystic fibrosis
     Dosage: FREQUENCY : TWICE A DAY;?
     Route: 055
     Dates: start: 20221014
  2. BUSPIRONE [Concomitant]
  3. OYSCO 500+D [Concomitant]
  4. PARI FILTER VALVE SET [Concomitant]
  5. PARI LC PLUS NEB SET [Concomitant]
  6. TRIKAFTA [Concomitant]

REACTIONS (2)
  - Hospitalisation [None]
  - Delivery [None]
